FAERS Safety Report 24970782 (Version 1)
Quarter: 2025Q1

REPORT INFORMATION
  Report Type: Spontaneous
  Country: US (occurrence: None)
  Receive Date: 20250214
  Receipt Date: 20250214
  Transmission Date: 20250409
  Serious: Yes (Hospitalization)
  Sender: FDA-CTU
  Company Number: None

PATIENT
  Age: 32 Year
  Sex: Male

DRUGS (13)
  1. SIROLIMUS [Suspect]
     Active Substance: SIROLIMUS
     Indication: Liver transplant
     Route: 048
     Dates: start: 20180214
  2. TACROLIMUS [Suspect]
     Active Substance: TACROLIMUS
  3. URSODIOL [Suspect]
     Active Substance: URSODIOL
     Indication: Liver transplant
     Dosage: FREQUENCY : DAILY;?
     Route: 048
     Dates: start: 20180214
  4. FISH OIL CAP 1200MG [Concomitant]
  5. GABAPENTIN CAP 100MG [Concomitant]
  6. MULTIVITAMIN CHW ADULT [Concomitant]
  7. ONDANSETRON [Concomitant]
     Active Substance: ONDANSETRON
  8. SIROLIMUS [Concomitant]
     Active Substance: SIROLIMUS
  9. TACROLIMUS [Concomitant]
     Active Substance: TACROLIMUS
  10. TACROLIMUS [Concomitant]
     Active Substance: TACROLIMUS
  11. TACROLIMUS A [Concomitant]
  12. TRAZODONE [Concomitant]
     Active Substance: TRAZODONE HYDROCHLORIDE
  13. URSODIOL [Concomitant]
     Active Substance: URSODIOL

REACTIONS (1)
  - Therapy interrupted [None]

NARRATIVE: CASE EVENT DATE: 20250213
